FAERS Safety Report 8078268-2 (Version None)
Quarter: 2012Q1

REPORT INFORMATION
  Report Type: 
  Country: None (occurrence: None)
  Receive Date: 20120127
  Receipt Date: 20110126
  Transmission Date: 20120608
  Serious: No
  Sender: FDA-Public Use
  Company Number: US-ABBOTT-10P-163-0693155-00

PATIENT
  Age: 65 Year
  Sex: Male

DRUGS (2)
  1. MANY [Concomitant]
     Indication: PRODUCT USED FOR UNKNOWN INDICATION
  2. HUMIRA [Suspect]
     Indication: PSORIATIC ARTHROPATHY
     Dates: start: 20101101

REACTIONS (3)
  - SINUS DISORDER [None]
  - ADVERSE EVENT [None]
  - NASOPHARYNGITIS [None]
